FAERS Safety Report 7129469-9 (Version None)
Quarter: 2010Q4

REPORT INFORMATION
  Report Type: 
  Country: None (occurrence: None)
  Receive Date: 20101130
  Receipt Date: 20101124
  Transmission Date: 20110411
  Serious: Yes (Hospitalization, Other)
  Sender: FDA-Public Use
  Company Number: US-ROXANE LABORATORIES, INC.-2010-RO-01547RO

PATIENT
  Age: 2 Year
  Sex: Male

DRUGS (1)
  1. METHADONE HCL [Suspect]

REACTIONS (9)
  - APHASIA [None]
  - BASAL GANGLIA INFARCTION [None]
  - CEREBELLAR INFARCTION [None]
  - CONVULSION [None]
  - ENCEPHALITIS [None]
  - HYPOTENSION [None]
  - HYPOVENTILATION [None]
  - METABOLIC ACIDOSIS [None]
  - PNEUMONIA ASPIRATION [None]
